FAERS Safety Report 6318211-7 (Version None)
Quarter: 2009Q3

REPORT INFORMATION
  Report Type: 
  Country: None (occurrence: None)
  Receive Date: 20090821
  Receipt Date: 20090817
  Transmission Date: 20100115
  Serious: Yes (Hospitalization)
  Sender: FDA-Public Use
  Company Number: B0589500A

PATIENT
  Age: 30 Year
  Sex: Female

DRUGS (1)
  1. ZINNAT [Suspect]
     Indication: DRUG USE FOR UNKNOWN INDICATION
     Route: 031
     Dates: start: 20090817

REACTIONS (6)
  - DYSPNOEA [None]
  - EYE SWELLING [None]
  - HEART RATE DECREASED [None]
  - HYPERSENSITIVITY [None]
  - PYREXIA [None]
  - VOMITING [None]
